FAERS Safety Report 13626485 (Version 1)
Quarter: 2017Q2

REPORT INFORMATION
  Report Type: Spontaneous
  Country: US (occurrence: US)
  Receive Date: 20170531
  Receipt Date: 20170531
  Transmission Date: 20170830
  Serious: Yes (Hospitalization)
  Sender: FDA-Public Use
  Company Number: US-ASTELLAS-1390535

PATIENT
  Sex: Male

DRUGS (4)
  1. LABETALOL HCL [Concomitant]
     Active Substance: LABETALOL HYDROCHLORIDE
  2. METFORMIN HYDROCHLORIDE. [Concomitant]
     Active Substance: METFORMIN HYDROCHLORIDE
     Route: 065
  3. TARCEVA [Suspect]
     Active Substance: ERLOTINIB HYDROCHLORIDE
     Indication: LUNG NEOPLASM MALIGNANT
     Dosage: FREQUENCY: DAILY
     Route: 048
     Dates: start: 20140410
  4. QUINAPRIL. [Concomitant]
     Active Substance: QUINAPRIL

REACTIONS (2)
  - Rash [Unknown]
  - Dyspnoea [Unknown]
